FAERS Safety Report 16683602 (Version 2)
Quarter: 2019Q3

REPORT INFORMATION
  Report Type: Report from Study
  Country: DE (occurrence: DE)
  Receive Date: 20190808
  Receipt Date: 20190812
  Transmission Date: 20191004
  Serious: Yes (Hospitalization)
  Sender: FDA-Public Use
  Company Number: DE-ROCHE-2364414

PATIENT
  Age: 45 Year
  Sex: Male
  Weight: 124 kg

DRUGS (8)
  1. COBIMETINIB. [Suspect]
     Active Substance: COBIMETINIB
     Indication: MALIGNANT MELANOMA
     Dosage: DATE OF MOST RECENT DOSE OF COBIMETINIB PRIOR TO LIPOSARCOMA NUCHAL ONSET ON 23/JUL/2019 AND DOSE AS
     Route: 048
     Dates: start: 20170904
  2. LERCANIDIPINE [Concomitant]
     Active Substance: LERCANIDIPINE
     Indication: HYPERTENSION
     Route: 048
     Dates: start: 20171215
  3. SPIRONOLACTON [Concomitant]
     Active Substance: SPIRONOLACTONE
     Indication: HYPERTENSION
     Route: 048
     Dates: start: 20171215
  4. ALOE VERA [Concomitant]
     Active Substance: ALOE VERA LEAF
     Indication: PRURITUS
     Route: 061
     Dates: start: 20180514
  5. ATEZOLIZUMAB. [Suspect]
     Active Substance: ATEZOLIZUMAB
     Indication: MALIGNANT MELANOMA
     Dosage: DATE OF MOST RECENT DOSE OF ATEZOLIZUMAB PRIOR TO LIPOSARCOMA NUCHAL ONSET ON 22/JUL/2017.
     Route: 042
     Dates: start: 20171016
  6. VEMURAFENIB. [Suspect]
     Active Substance: VEMURAFENIB
     Indication: MALIGNANT MELANOMA
     Dosage: DATE OF MOST RECENT DOSE OF VEMURAFENIB (DOSE BLINDED) PRIOR TO LIPOSARCOMA NUCHAL ONSET ON 23/JUL/2
     Route: 048
     Dates: start: 20170904
  7. METOPROLOL. [Concomitant]
     Active Substance: METOPROLOL
     Indication: HYPERTENSION
     Route: 048
     Dates: start: 20171215
  8. LISINOPRIL. [Concomitant]
     Active Substance: LISINOPRIL
     Indication: HYPERTENSION
     Route: 048
     Dates: start: 20171215

REACTIONS (1)
  - Liposarcoma [Recovered/Resolved]

NARRATIVE: CASE EVENT DATE: 20190723
